FAERS Safety Report 14225338 (Version 2)
Quarter: 2017Q4

REPORT INFORMATION
  Report Type: Spontaneous
  Country: US (occurrence: US)
  Receive Date: 20171127
  Receipt Date: 20171129
  Transmission Date: 20180321
  Serious: No
  Sender: FDA-Public Use
  Company Number: US-PFIZER INC-2017505813

PATIENT
  Age: 48 Year
  Sex: Male
  Weight: 79.38 kg

DRUGS (1)
  1. SUTENT [Suspect]
     Active Substance: SUNITINIB MALATE
     Indication: METASTATIC RENAL CELL CARCINOMA
     Dosage: 50 MG, CYCLIC(50MG CAPSULE BY MOUTH DAILY FOR 4 WEEKS ON THEN 2 WEEKS OFF)
     Route: 048
     Dates: start: 20171115

REACTIONS (4)
  - Musculoskeletal chest pain [Unknown]
  - Rib fracture [Unknown]
  - Pallor [Not Recovered/Not Resolved]
  - Nipple pain [Unknown]

NARRATIVE: CASE EVENT DATE: 20171117
